FAERS Safety Report 17729266 (Version 1)
Quarter: 2020Q2

REPORT INFORMATION
  Report Type: Spontaneous
  Country: DK (occurrence: DE)
  Receive Date: 20200430
  Receipt Date: 20200430
  Transmission Date: 20200714
  Serious: Yes (Hospitalization, Other)
  Sender: FDA-Public Use
  Company Number: DK-MYLANLABS-2020M1041854

PATIENT
  Age: 51 Year
  Sex: Female

DRUGS (5)
  1. INTERFERON BETA NOS [Suspect]
     Active Substance: INTERFERON BETA
     Indication: RELAPSING-REMITTING MULTIPLE SCLEROSIS
     Dosage: DAILY DOSE: 30 ?G MICROGRAM(S) EVERY WEEK
     Dates: start: 200606
  2. IBUPROFEN. [Suspect]
     Active Substance: IBUPROFEN
     Indication: PRODUCT USED FOR UNKNOWN INDICATION
     Dosage: DOSAGE FORM: UNSPECIFIED, DAILY DOSE QTY: 500 MG
  3. SERTRALINE [Suspect]
     Active Substance: SERTRALINE HYDROCHLORIDE
     Indication: ANTIDEPRESSANT THERAPY
     Dosage: UNK
  4. SIMVASTATIN. [Suspect]
     Active Substance: SIMVASTATIN
     Indication: LIPIDS INCREASED
     Dosage: DOSAGE FORM: UNKNOWN
  5. LORAZEPAM. [Suspect]
     Active Substance: LORAZEPAM
     Indication: ANTIDEPRESSANT THERAPY
     Dosage: UNK

REACTIONS (4)
  - Coma hepatic [Recovered/Resolved]
  - Acute hepatic failure [Recovered/Resolved]
  - Autoimmune hepatitis [Recovered/Resolved]
  - Hepatic encephalopathy [Recovered/Resolved]
